FAERS Safety Report 6571166-2 (Version None)
Quarter: 2010Q1

REPORT INFORMATION
  Report Type: 
  Country: None (occurrence: None)
  Receive Date: 20100129
  Receipt Date: 20100113
  Transmission Date: 20100710
  Serious: Yes (Hospitalization, Other)
  Sender: FDA-Public Use
  Company Number: 2009AC000358

PATIENT
  Age: 73 Year
  Sex: Female

DRUGS (22)
  1. DIGOXIN [Suspect]
     Indication: CARDIAC FAILURE CONGESTIVE
     Dosage: 0.125 MG;QD;PO .25 MG;QD;PO
     Route: 048
  2. HYDRALAZINE [Concomitant]
  3. CARDIZEM [Concomitant]
  4. MELOXICAM [Concomitant]
  5. LISINOPRIL [Concomitant]
  6. KLOR-CON [Concomitant]
  7. ASPIRIN [Concomitant]
  8. HYDROCHLOROTHIAZIDE [Concomitant]
  9. ISOSORBIDE [Concomitant]
  10. BYSTOLIC [Concomitant]
  11. TEKTURNA [Concomitant]
  12. VESICARE [Concomitant]
  13. FLEXERIL [Concomitant]
  14. VITAMIN D [Concomitant]
  15. FISH OIL [Concomitant]
  16. PERCOCET [Concomitant]
  17. ASMANEX TWISTHALER [Concomitant]
  18. CYMBALTA [Concomitant]
  19. OMEPRAZOLE [Concomitant]
  20. DITROPAN [Concomitant]
  21. TIAZAC [Concomitant]
  22. PREMPHASE 14/14 [Concomitant]

REACTIONS (23)
  - ANHEDONIA [None]
  - ANXIETY [None]
  - ATRIOVENTRICULAR BLOCK FIRST DEGREE [None]
  - BRADYCARDIA [None]
  - CHEST DISCOMFORT [None]
  - COLD SWEAT [None]
  - DIVERTICULUM [None]
  - DYSPNOEA [None]
  - ECONOMIC PROBLEM [None]
  - FATIGUE [None]
  - HAEMORRHOIDS [None]
  - HYPERTENSION [None]
  - MENTAL DISORDER [None]
  - MULTIPLE INJURIES [None]
  - OSTEOARTHRITIS [None]
  - PAIN [None]
  - PALPITATIONS [None]
  - PRESYNCOPE [None]
  - THERAPEUTIC AGENT TOXICITY [None]
  - UNEVALUABLE EVENT [None]
  - VENTRICULAR EXTRASYSTOLES [None]
  - VENTRICULAR TACHYCARDIA [None]
  - VISUAL IMPAIRMENT [None]
